FAERS Safety Report 6690087-8 (Version None)
Quarter: 2010Q2

REPORT INFORMATION
  Report Type: 
  Country: None (occurrence: None)
  Receive Date: 20100421
  Receipt Date: 20100414
  Transmission Date: 20101027
  Serious: Yes (Other)
  Sender: FDA-Public Use
  Company Number: US-RB-001798-10

PATIENT
  Age: 48 Year
  Sex: Female

DRUGS (5)
  1. SUBOXONE [Suspect]
     Route: 060
     Dates: start: 20090801
  2. LEXAPRO [Suspect]
     Indication: DEPRESSION
     Dosage: DOSING DETAILS UNKNOWN
     Route: 065
  3. WELLBUTRIN [Suspect]
     Indication: DEPRESSION
     Dosage: DOSING DETAILS UNKNOWN
     Route: 065
  4. LUNESTA [Suspect]
     Indication: INSOMNIA
     Dosage: DOSING DETAILS UNKNOWN
     Route: 065
  5. AMBIEN [Suspect]
     Indication: INSOMNIA
     Dosage: 10 MG
     Route: 065

REACTIONS (5)
  - DYSKINESIA [None]
  - HALLUCINATION [None]
  - HAND FRACTURE [None]
  - INFLUENZA LIKE ILLNESS [None]
  - POOR QUALITY SLEEP [None]
